FAERS Safety Report 11934166 (Version 1)
Quarter: 2016Q1

REPORT INFORMATION
  Report Type: Spontaneous
  Country: US (occurrence: None)
  Receive Date: 20160120
  Receipt Date: 20160120
  Transmission Date: 20160526
  Serious: Yes (Disabling)
  Sender: FDA-Public Use
  Company Number: None

PATIENT
  Age: 62 Year
  Sex: Female
  Weight: 58.06 kg

DRUGS (18)
  1. MULTI VITAMIN [Concomitant]
     Active Substance: VITAMINS
  2. VIT K [Concomitant]
  3. HAWTHORN GARLIC OIL [Concomitant]
  4. CALCIUM [Concomitant]
     Active Substance: CALCIUM
  5. COQ10 [Concomitant]
     Active Substance: UBIDECARENONE
  6. PROLIA [Suspect]
     Active Substance: DENOSUMAB
     Indication: OSTEOPOROSIS
     Dosage: ONE INJECTION EVERY 6 MONTHS GIVEN INTO/UNDER THE SKIN
  7. PROTONIX [Concomitant]
     Active Substance: PANTOPRAZOLE SODIUM
  8. VITAMIN D [Concomitant]
     Active Substance: CHOLECALCIFEROL
  9. MAGNESIUM [Concomitant]
     Active Substance: MAGNESIUM
  10. ALLEGRA [Concomitant]
     Active Substance: FEXOFENADINE HYDROCHLORIDE
  11. VITAMIN E [Concomitant]
     Active Substance: .ALPHA.-TOCOPHEROL
  12. ZINC [Concomitant]
     Active Substance: ZINC\ZINC CHLORIDE
  13. VIT B1 [Concomitant]
     Active Substance: THIAMINE
  14. INOSITOL [Concomitant]
     Active Substance: INOSITOL
  15. VITAMIN B12 [Concomitant]
     Active Substance: CYANOCOBALAMIN
  16. LEVOTHYROXIN [Concomitant]
     Active Substance: LEVOTHYROXINE
  17. VITAMIN C [Concomitant]
     Active Substance: ASCORBIC ACID
  18. L-LYSINE [Concomitant]
     Active Substance: LYSINE

REACTIONS (4)
  - Blood calcium abnormal [None]
  - Musculoskeletal pain [None]
  - Myalgia [None]
  - Bone pain [None]

NARRATIVE: CASE EVENT DATE: 20151220
